FAERS Safety Report 8555504-7 (Version None)
Quarter: 2012Q3

REPORT INFORMATION
  Report Type: 
  Country: None (occurrence: None)
  Receive Date: 20120731
  Receipt Date: 20120131
  Transmission Date: 20120928
  Serious: Yes (Other)
  Sender: FDA-Public Use
  Company Number: US-ASTRAZENECA-2011SE03377

PATIENT
  Age: 55 Year
  Sex: Female

DRUGS (4)
  1. SEROQUEL [Suspect]
     Route: 048
  2. SEROQUEL [Suspect]
     Dosage: 400-600 MG
     Route: 048
  3. EFFEXOR [Concomitant]
     Dosage: 75-112.5
  4. SEROQUEL [Suspect]
     Route: 048

REACTIONS (8)
  - ADVERSE DRUG REACTION [None]
  - HYPERSOMNIA [None]
  - IRRITABILITY [None]
  - SUICIDAL IDEATION [None]
  - BIPOLAR I DISORDER [None]
  - SEDATION [None]
  - FEELING ABNORMAL [None]
  - DEPRESSION [None]
